FAERS Safety Report 24780905 (Version 1)
Quarter: 2024Q4

REPORT INFORMATION
  Report Type: Spontaneous
  Country: NO (occurrence: NO)
  Receive Date: 20241227
  Receipt Date: 20241227
  Transmission Date: 20250114
  Serious: Yes (Other)
  Sender: CELLTRION
  Company Number: None

PATIENT

DRUGS (4)
  1. ADALIMUMAB [Suspect]
     Active Substance: ADALIMUMAB
     Indication: Rheumatoid arthritis
     Dosage: 1 DF, EVERY 10 DAYS
     Dates: end: 2024
  2. ARAVA [Suspect]
     Active Substance: LEFLUNOMIDE
     Indication: Rheumatoid arthritis
     Dosage: UNK, START DATE FOR ARAVA IS NOT STATED, BUT SHE HAD PROBABLY USED IT FOR LESS THAN A YEAR
     Route: 048
     Dates: start: 2023, end: 202402
  3. TIBOLON ARISTO [Concomitant]
     Dosage: 2.5 MG, DAILY
  4. VIMOVO [Concomitant]
     Active Substance: ESOMEPRAZOLE MAGNESIUM\NAPROXEN
     Dosage: 1 DF,EVERY 12 HRS

REACTIONS (7)
  - Skin odour abnormal [Unknown]
  - Hyperhidrosis [Recovering/Resolving]
  - Weight increased [Unknown]
  - Hypertension [Not Recovered/Not Resolved]
  - Infection susceptibility increased [Recovering/Resolving]
  - Rash [Recovering/Resolving]
  - Intentional product use issue [Unknown]
